FAERS Safety Report 9353751 (Version 2)
Quarter: 2013Q3

REPORT INFORMATION
  Report Type: Spontaneous
  Country: DE (occurrence: None)
  Receive Date: 20130612
  Receipt Date: 20130703
  Transmission Date: 20140515
  Serious: Yes (Other)
  Sender: FDA-Public Use
  Company Number: 1306-746

PATIENT
  Age: 75 Year
  Sex: Female

DRUGS (9)
  1. EYLEA [Suspect]
     Indication: AGE-RELATED MACULAR DEGENERATION
     Dates: start: 20130103
  2. BETAMETHASONE (DIPROPIONATE (BETAMETHASONE DIPROPIONATE) [Concomitant]
  3. DOTHEP (DOSULEPIN HYDROCHLORIDE) [Concomitant]
  4. FRUSEMIDE (FUROSEMIDE) [Concomitant]
  5. SERETIDE (SERETIDE) [Concomitant]
  6. SPIRONOLACTONE (SPIRONOLACTONE) [Concomitant]
  7. TEMAZE (TEMAZEPAM) [Concomitant]
  8. VALIUM (DIAZEPAM) [Concomitant]
  9. VENTOLIN (SALBUTAMOL) [Concomitant]

REACTIONS (8)
  - Eye pain [None]
  - Haematochezia [None]
  - Oesophagitis [None]
  - Gastritis [None]
  - Metaplasia [None]
  - Large intestine polyp [None]
  - Large intestine polyp [None]
  - Gastrointestinal tract adenoma [None]
